FAERS Safety Report 5537771-7 (Version None)
Quarter: 2007Q4

REPORT INFORMATION
  Report Type: 
  Country: None (occurrence: None)
  Receive Date: 20071207
  Receipt Date: 20071125
  Transmission Date: 20080405
  Serious: Yes (Other)
  Sender: FDA-Public Use
  Company Number: US-PFIZER INC-2007100218

PATIENT
  Sex: Male

DRUGS (2)
  1. CHANTIX [Suspect]
  2. EFFEXOR [Concomitant]
     Indication: DEPRESSION

REACTIONS (1)
  - DEPRESSION [None]
